FAERS Safety Report 6654119-5 (Version None)
Quarter: 2010Q1

REPORT INFORMATION
  Report Type: 
  Country: None (occurrence: None)
  Receive Date: 20100324
  Receipt Date: 20100301
  Transmission Date: 20100710
  Serious: Yes (Other)
  Sender: FDA-Public Use
  Company Number: 220001N10DEU

PATIENT
  Age: 9 Year
  Sex: Female
  Weight: 21.6 kg

DRUGS (4)
  1. SAIZEN [Suspect]
     Indication: SMALL FOR DATES BABY
     Dosage: 0.7 MG, 1 IN 1 DAYS, SUBCUTANEOUS
     Route: 058
     Dates: start: 20080730, end: 20090415
  2. HYDROCORTISONE [Concomitant]
  3. L-THYROXINE (LEVOTHYROXINE) [Concomitant]
  4. MINIRIN [Concomitant]

REACTIONS (1)
  - SCOLIOSIS [None]
